FAERS Safety Report 6583714-7 (Version None)
Quarter: 2010Q1

REPORT INFORMATION
  Report Type: 
  Country: None (occurrence: None)
  Receive Date: 20100213
  Receipt Date: 20100213
  Transmission Date: 20100710
  Serious: No
  Sender: FDA-Public Use
  Company Number: None

PATIENT
  Sex: Female

DRUGS (7)
  1. REVLIMID [Suspect]
     Indication: MULTIPLE MYELOMA
     Dosage: 15MG DAILY 21D/28D ORALLY
     Route: 048
     Dates: start: 20100109, end: 20100129
  2. LEVOTHROID [Concomitant]
  3. POTASSIUM CHLORIDE [Concomitant]
  4. HYDROCHLOROTHIAZIDE [Concomitant]
  5. DORZOLAMIDE OPTHAL [Concomitant]
  6. TIMOLOL OPTHAL [Concomitant]
  7. BRIMONIDINE OPTHAL [Concomitant]

REACTIONS (1)
  - NEUROPATHY PERIPHERAL [None]
